FAERS Safety Report 16834215 (Version 2)
Quarter: 2023Q4

REPORT INFORMATION
  Report Type: Spontaneous
  Country: FR (occurrence: FR)
  Receive Date: 20190920
  Receipt Date: 20231103
  Transmission Date: 20240109
  Serious: Yes (Hospitalization, Other)
  Sender: FDA-Public Use
  Company Number: FR-WARNER_CHILCOTT-FRP11000146

PATIENT
  Age: 69 Year
  Sex: Female
  Weight: 63 kg

DRUGS (12)
  1. METHOTREXATE SODIUM [Suspect]
     Active Substance: METHOTREXATE SODIUM
     Indication: Rheumatoid arthritis
     Dosage: UNK
     Dates: start: 1995, end: 2001
  2. VALSARTAN [Suspect]
     Active Substance: VALSARTAN
     Indication: Hypertension
     Dosage: 80 MG, UNK
     Route: 048
  3. PREDNISONE [Suspect]
     Active Substance: PREDNISONE
     Indication: Polyarthritis
     Dosage: 5 MG, 1X/DAY
     Route: 048
  4. CALCIUM CARBONATE\CHOLECALCIFEROL [Suspect]
     Active Substance: CALCIUM CARBONATE\CHOLECALCIFEROL
     Dosage: UNK
  5. MABTHERA [Suspect]
     Active Substance: RITUXIMAB
     Indication: Polyarthritis
     Dosage: UNK
     Route: 042
     Dates: end: 20100722
  6. ACTONEL [Suspect]
     Active Substance: RISEDRONATE SODIUM
     Dosage: UNK
     Route: 048
     Dates: start: 2006, end: 2009
  7. ACETAMINOPHEN [Suspect]
     Active Substance: ACETAMINOPHEN
     Dosage: 3 DF, 1X/DAY
     Route: 048
  8. ESTRADIOL [Suspect]
     Active Substance: ESTRADIOL
     Indication: Oestrogen replacement therapy
     Dosage: 25 UG, EVERY 2 WEEKS
     Route: 062
  9. ARAVA [Suspect]
     Active Substance: LEFLUNOMIDE
     Indication: Polyarthritis
     Dosage: 20 MG, 1X/DAY
     Route: 048
  10. HYDROXYCHLOROQUINE [Concomitant]
     Active Substance: HYDROXYCHLOROQUINE
     Dosage: UNK
  11. INFLIXIMAB [Concomitant]
     Active Substance: INFLIXIMAB
     Dosage: UNK
  12. OFLOXACIN [Concomitant]
     Active Substance: OFLOXACIN
     Dosage: UNK
     Route: 048
     Dates: start: 20100820, end: 20100823

REACTIONS (6)
  - Oral herpes [Recovered/Resolved]
  - Periodontitis [Unknown]
  - Osteonecrosis of jaw [Unknown]
  - Gingival ulceration [Unknown]
  - Pain in jaw [Unknown]
  - Oral pain [Unknown]

NARRATIVE: CASE EVENT DATE: 20100801
